FAERS Safety Report 8309307-9 (Version None)
Quarter: 2012Q2

REPORT INFORMATION
  Report Type: 
  Country: None (occurrence: None)
  Receive Date: 20120425
  Receipt Date: 20120409
  Transmission Date: 20120825
  Serious: Yes (Hospitalization)
  Sender: FDA-Public Use
  Company Number: US-ASTRAZENECA-2012SE23467

PATIENT
  Sex: Female

DRUGS (2)
  1. SEROQUEL XR [Suspect]
     Indication: SCHIZOPHRENIA
     Route: 048
  2. ANOTHER MEDICATION [Suspect]
     Route: 065

REACTIONS (4)
  - MUSCLE TWITCHING [None]
  - CHILLS [None]
  - MALAISE [None]
  - DRUG DOSE OMISSION [None]
